FAERS Safety Report 17226958 (Version 1)
Quarter: 2020Q1

REPORT INFORMATION
  Report Type: Report from Study
  Country: None (occurrence: US)
  Receive Date: 20200103
  Receipt Date: 20200103
  Transmission Date: 20200409
  Serious: Yes (Life-Threatening, Other)
  Sender: FDA-Public Use
  Company Number: US-ABBVIE-19K-163-2774197-00

PATIENT
  Age: 33 Year
  Sex: Female
  Weight: 74.91 kg

DRUGS (1)
  1. HUMIRA [Suspect]
     Active Substance: ADALIMUMAB
     Indication: CROHN^S DISEASE
     Route: 058
     Dates: start: 20180518

REACTIONS (7)
  - Kidney infection [Unknown]
  - Maternal exposure during pregnancy [Unknown]
  - Crohn^s disease [Unknown]
  - Vaginal haemorrhage [Unknown]
  - Cholestasis of pregnancy [Unknown]
  - Premature delivery [Unknown]
  - Sepsis [Unknown]

NARRATIVE: CASE EVENT DATE: 20190809
